FAERS Safety Report 17848699 (Version 3)
Quarter: 2021Q1

REPORT INFORMATION
  Report Type: Report from Study
  Country: BR (occurrence: BR)
  Receive Date: 20200602
  Receipt Date: 20210112
  Transmission Date: 20210419
  Serious: Yes (Hospitalization, Other)
  Sender: FDA-Public Use
  Company Number: NVSC2020BR148587

PATIENT
  Age: 71 Year
  Sex: Female

DRUGS (3)
  1. COSENTYX [Suspect]
     Active Substance: SECUKINUMAB
     Indication: PSORIATIC ARTHROPATHY
     Dosage: 300 MG, UNKNOWN
     Route: 065
     Dates: start: 20180319
  2. VITAMIN D [Concomitant]
     Active Substance: VITAMIN D NOS
     Indication: PRODUCT USED FOR UNKNOWN INDICATION
     Dosage: UNK
     Route: 065
  3. GLIFAGE [Concomitant]
     Active Substance: METFORMIN HYDROCHLORIDE
     Indication: PRODUCT USED FOR UNKNOWN INDICATION
     Dosage: UNK
     Route: 065

REACTIONS (36)
  - Vitamin D deficiency [Unknown]
  - Ocular icterus [Not Recovered/Not Resolved]
  - Memory impairment [Not Recovered/Not Resolved]
  - Joint stiffness [Unknown]
  - Drug ineffective [Unknown]
  - Flatulence [Not Recovered/Not Resolved]
  - Pigmentation disorder [Unknown]
  - Malaise [Recovering/Resolving]
  - Polyp [Recovered/Resolved]
  - Arthropathy [Not Recovered/Not Resolved]
  - Lung disorder [Recovering/Resolving]
  - Glycosylated haemoglobin increased [Unknown]
  - Fatigue [Unknown]
  - Head discomfort [Unknown]
  - Dandruff [Unknown]
  - Abdominal pain upper [Unknown]
  - Vision blurred [Recovered/Resolved]
  - Platelet aggregation inhibition [Unknown]
  - Pain in extremity [Not Recovered/Not Resolved]
  - Skin disorder [Unknown]
  - COVID-19 [Recovering/Resolving]
  - Choking [Recovered/Resolved with Sequelae]
  - Viral infection [Recovered/Resolved]
  - Dizziness [Not Recovered/Not Resolved]
  - Blood pressure fluctuation [Unknown]
  - Hyperhidrosis [Not Recovered/Not Resolved]
  - Tremor [Not Recovered/Not Resolved]
  - Nausea [Not Recovered/Not Resolved]
  - Osteoarthritis [Unknown]
  - Product dose omission issue [Unknown]
  - Alopecia [Recovering/Resolving]
  - Blood glucose abnormal [Not Recovered/Not Resolved]
  - Pallor [Not Recovered/Not Resolved]
  - Blood 25-hydroxycholecalciferol decreased [Unknown]
  - Pruritus [Not Recovered/Not Resolved]
  - Pain in extremity [Unknown]

NARRATIVE: CASE EVENT DATE: 2018
